FAERS Safety Report 4319860-8 (Version None)
Quarter: 2004Q1

REPORT INFORMATION
  Report Type: 
  Country: None (occurrence: None)
  Receive Date: 20040316
  Receipt Date: 20040305
  Transmission Date: 20041129
  Serious: No
  Sender: FDA-Public Use
  Company Number: 04P-163-0252220-00

PATIENT
  Age: 2 Year
  Sex: Male

DRUGS (6)
  1. BIAXIN [Suspect]
     Indication: STREPTOCOCCAL INFECTION
     Dosage: 100 MG, 2 IN 1 D, PER ORAL
     Route: 048
     Dates: start: 20040212, end: 20040215
  2. SINGULAIR [Concomitant]
  3. IBUPROFEN [Concomitant]
  4. ZITHROMAX [Concomitant]
  5. ZOPINEX [Concomitant]
  6. CLINDAMYCIN HYDROCHLORIDE [Concomitant]

REACTIONS (2)
  - CROUP INFECTIOUS [None]
  - URTICARIA [None]
